FAERS Safety Report 5937763-X (Version None)
Quarter: 2008Q4

REPORT INFORMATION
  Report Type: 
  Country: None (occurrence: None)
  Receive Date: 20081031
  Receipt Date: 20081025
  Transmission Date: 20090506
  Serious: Yes (Life-Threatening, Hospitalization, Other)
  Sender: FDA-Public Use
  Company Number: PHHO2008RU12882

PATIENT
  Sex: Male
  Weight: 76 kg

DRUGS (1)
  1. AMN107 [Suspect]
     Dosage: 800 MG,
     Route: 048
     Dates: start: 20080214, end: 20081019

REACTIONS (8)
  - ABDOMINAL PAIN [None]
  - ANAEMIA [None]
  - COLITIS ULCERATIVE [None]
  - DIARRHOEA [None]
  - GASTRODUODENITIS [None]
  - GASTROINTESTINAL HAEMORRHAGE [None]
  - MELAENA [None]
  - NAUSEA [None]
